FAERS Safety Report 15658959 (Version 1)
Quarter: 2018Q4

REPORT INFORMATION
  Report Type: Spontaneous
  Country: IT (occurrence: IT)
  Receive Date: 20181126
  Receipt Date: 20181126
  Transmission Date: 20190205
  Serious: Yes (Other)
  Sender: FDA-Public Use
  Company Number: IT-ACCORD-093632

PATIENT
  Age: 63 Year
  Sex: Male

DRUGS (1)
  1. MITOMYCIN. [Suspect]
     Active Substance: MITOMYCIN
     Indication: BLADDER NEOPLASM
     Route: 043
     Dates: start: 20170701, end: 20171229

REACTIONS (3)
  - Haematuria [Recovering/Resolving]
  - Bladder irritation [Recovering/Resolving]
  - Pyuria [Recovering/Resolving]

NARRATIVE: CASE EVENT DATE: 20171229
